FAERS Safety Report 21600707 (Version 4)
Quarter: 2023Q2

REPORT INFORMATION
  Report Type: Report from Study
  Country: US (occurrence: US)
  Receive Date: 20221116
  Receipt Date: 20230525
  Transmission Date: 20230721
  Serious: Yes (Other)
  Sender: FDA-Public Use
  Company Number: US-ABBVIE-22K-163-4488714-00

PATIENT
  Age: 74 Year
  Sex: Female
  Weight: 36.287 kg

DRUGS (9)
  1. HUMIRA [Suspect]
     Active Substance: ADALIMUMAB
     Indication: Rheumatoid arthritis
     Dosage: CITRATE FREE
     Route: 058
     Dates: start: 2021
  2. HUMIRA [Suspect]
     Active Substance: ADALIMUMAB
     Dosage: CITRATE FREE
     Route: 058
  3. VITAMIN D [Concomitant]
     Active Substance: VITAMIN D NOS
     Indication: Vitamin supplementation
  4. PFIZER-BIONTECH COVID-19 VACCINE [Concomitant]
     Active Substance: TOZINAMERAN
     Indication: COVID-19 immunisation
     Dosage: 1 IN ONCE
     Route: 030
  5. LEFLUNOMIDE [Concomitant]
     Active Substance: LEFLUNOMIDE
     Indication: Arthralgia
  6. CEVIMELINE [Concomitant]
     Active Substance: CEVIMELINE
     Indication: Dry mouth
  7. FEBUXOSTAT [Concomitant]
     Active Substance: FEBUXOSTAT
     Indication: Gout
  8. GABAPENTIN [Concomitant]
     Active Substance: GABAPENTIN
     Indication: Pain
  9. TRAMADOL [Concomitant]
     Active Substance: TRAMADOL
     Indication: Pain

REACTIONS (11)
  - Head and neck cancer [Not Recovered/Not Resolved]
  - Lymphoma [Unknown]
  - Tongue neoplasm malignant stage unspecified [Not Recovered/Not Resolved]
  - Device physical property issue [Unknown]
  - Pain in extremity [Not Recovered/Not Resolved]
  - Weight decreased [Recovering/Resolving]
  - Lung disorder [Unknown]
  - Ear neoplasm malignant [Not Recovered/Not Resolved]
  - Hypophagia [Not Recovered/Not Resolved]
  - Device issue [Recovered/Resolved]
  - Decreased appetite [Recovering/Resolving]

NARRATIVE: CASE EVENT DATE: 20220101
